FAERS Safety Report 17029718 (Version 6)
Quarter: 2020Q1

REPORT INFORMATION
  Report Type: Spontaneous
  Country: US (occurrence: US)
  Receive Date: 20191114
  Receipt Date: 20200206
  Transmission Date: 20200409
  Serious: Yes (Other)
  Sender: FDA-Public Use
  Company Number: US-SUN PHARMACEUTICAL INDUSTRIES LTD-2019R1-225638

PATIENT
  Sex: Female

DRUGS (7)
  1. AMBRISENTAN [Suspect]
     Active Substance: AMBRISENTAN
     Indication: PRODUCT USED FOR UNKNOWN INDICATION
     Dosage: 5 MILLIGRAM, QD
     Route: 048
     Dates: start: 20191002
  2. AMBRISENTAN [Suspect]
     Active Substance: AMBRISENTAN
     Indication: PRODUCT USED FOR UNKNOWN INDICATION
     Dosage: 10 MILLIGRAM, QD
     Route: 048
     Dates: start: 20191102
  3. ELIQUIS [Concomitant]
     Active Substance: APIXABAN
     Indication: PRODUCT USED FOR UNKNOWN INDICATION
     Route: 065
  4. AMBRISENTAN [Suspect]
     Active Substance: AMBRISENTAN
     Dosage: 10 MILLIGRAM, QD
     Route: 048
     Dates: start: 20191002
  5. ADEMPAS [Suspect]
     Active Substance: RIOCIGUAT
     Indication: PRODUCT USED FOR UNKNOWN INDICATION
     Dosage: UNK
     Route: 065
  6. AMBRISENTAN [Suspect]
     Active Substance: AMBRISENTAN
     Dosage: 5 MILLIGRAM, QD
     Route: 048
     Dates: start: 20191002
  7. ADEMPAS [Suspect]
     Active Substance: RIOCIGUAT
     Dosage: UNK (DECREASED TO 1 MILLIGRAM)
     Route: 065

REACTIONS (23)
  - Oedema [Unknown]
  - Alopecia [Unknown]
  - Syncope [Unknown]
  - Chest pain [Unknown]
  - Postural orthostatic tachycardia syndrome [Unknown]
  - Dyspnoea [Unknown]
  - Migraine [Unknown]
  - Endometriosis [Unknown]
  - Fluid retention [Unknown]
  - Liver function test abnormal [Unknown]
  - Haemoptysis [Not Recovered/Not Resolved]
  - Exercise tolerance decreased [Unknown]
  - Abdominal distension [Unknown]
  - Pulmonary arterial hypertension [Unknown]
  - Weight increased [Unknown]
  - Pulmonary hypertension [Unknown]
  - Fatigue [Unknown]
  - Epistaxis [Unknown]
  - Nocturnal dyspnoea [Not Recovered/Not Resolved]
  - Hypotension [Not Recovered/Not Resolved]
  - Dizziness [Unknown]
  - Nasal congestion [Unknown]
  - Decreased appetite [Unknown]

NARRATIVE: CASE EVENT DATE: 2019
